FAERS Safety Report 6144975-1 (Version None)
Quarter: 2009Q2

REPORT INFORMATION
  Report Type: 
  Country: None (occurrence: None)
  Receive Date: 20090406
  Receipt Date: 20090324
  Transmission Date: 20091009
  Serious: Yes (Hospitalization)
  Sender: FDA-Public Use
  Company Number: FR-GENENTECH-279718

PATIENT
  Sex: Female
  Weight: 50 kg

DRUGS (10)
  1. LUCENTIS [Suspect]
     Indication: MACULAR DEGENERATION
     Dosage: UNK
     Dates: start: 20081121
  2. LUCENTIS [Suspect]
     Dosage: UNK
     Dates: start: 20081223
  3. LUCENTIS [Suspect]
     Dosage: UNK
     Dates: start: 20090128
  4. ESOMEPRAZOLE MAGNESIUM [Concomitant]
     Indication: DRUG USE FOR UNKNOWN INDICATION
  5. DOLIPRANE [Concomitant]
     Indication: DRUG USE FOR UNKNOWN INDICATION
  6. ESBERIVEN [Concomitant]
     Indication: DRUG USE FOR UNKNOWN INDICATION
  7. POVIDONE [Concomitant]
     Indication: DRUG USE FOR UNKNOWN INDICATION
  8. ARNICA [Concomitant]
     Indication: DRUG USE FOR UNKNOWN INDICATION
  9. VISUDYNE [Concomitant]
     Indication: DRUG USE FOR UNKNOWN INDICATION
     Dosage: UNK
     Route: 042
     Dates: start: 20081121
  10. INFLUVAC [Concomitant]
     Indication: DRUG USE FOR UNKNOWN INDICATION

REACTIONS (1)
  - ARTHRALGIA [None]
